FAERS Safety Report 6007351-8 (Version None)
Quarter: 2008Q4

REPORT INFORMATION
  Report Type: 
  Country: None (occurrence: None)
  Receive Date: 20081217
  Receipt Date: 20080317
  Transmission Date: 20090506
  Serious: No
  Sender: FDA-Public Use
  Company Number: US-ASTRAZENECA-2008UW05300

PATIENT
  Age: 45 Year
  Sex: Male
  Weight: 95.3 kg

DRUGS (4)
  1. CRESTOR [Suspect]
     Indication: BLOOD CHOLESTEROL INCREASED
     Route: 048
     Dates: start: 20080301
  2. NIASPAN [Interacting]
  3. COREG [Concomitant]
  4. ALTACE [Concomitant]

REACTIONS (2)
  - MYALGIA [None]
  - POTENTIATING DRUG INTERACTION [None]
